FAERS Safety Report 9026333 (Version 1)
Quarter: 2012Q4

REPORT INFORMATION
  Report Type: Spontaneous
  Country: US (occurrence: None)
  Receive Date: 20121231
  Receipt Date: 20121231
  Transmission Date: 20130627
  Serious: Yes (Other)
  Sender: FDA-Public Use
  Company Number: 2012034265

PATIENT
  Sex: Female

DRUGS (1)
  1. HIZENTRA (IMMUNOGLOBULIN HUMAN NORMAL) [Suspect]
     Indication: IMMUNODEFICIENCY COMMON VARIABLE
     Dosage: 75 ml 1x/week, Started Jan-2011 Subcutaneous

REACTIONS (6)
  - Fatigue [None]
  - Sinusitis [None]
  - Sinus headache [None]
  - Headache [None]
  - Migraine [None]
  - Tooth abscess [None]
